FAERS Safety Report 13584586 (Version 1)
Quarter: 2017Q2

REPORT INFORMATION
  Report Type: Spontaneous
  Country: FR (occurrence: FR)
  Receive Date: 20170526
  Receipt Date: 20170526
  Transmission Date: 20170830
  Serious: Yes (Death, Life-Threatening, Hospitalization, Other)
  Sender: FDA-Public Use
  Company Number: FR-ZYDUS-015235

PATIENT
  Age: 34 Year
  Sex: Male

DRUGS (9)
  1. TROPATEPINE/TROPATEPINE HYDROCHLORIDE [Suspect]
     Active Substance: TROPATEPINE HYDROCHLORIDE
     Indication: BIPOLAR DISORDER
     Dates: start: 20120605
  2. DIAZEPAM. [Suspect]
     Active Substance: DIAZEPAM
     Indication: BIPOLAR DISORDER
  3. LOXAPINE. [Suspect]
     Active Substance: LOXAPINE
     Indication: BIPOLAR DISORDER
     Route: 048
     Dates: start: 20120614
  4. TRAMADOL. [Suspect]
     Active Substance: TRAMADOL
     Indication: ABDOMINAL PAIN
     Dates: start: 20120625
  5. QUETIAPINE/QUETIAPINE FUMARATE [Suspect]
     Active Substance: QUETIAPINE FUMARATE
     Indication: BIPOLAR DISORDER
     Route: 048
     Dates: start: 20120605
  6. VALPROIC ACID. [Suspect]
     Active Substance: VALPROIC ACID
     Indication: BIPOLAR DISORDER
  7. LOXAPINE. [Suspect]
     Active Substance: LOXAPINE
     Indication: BIPOLAR DISORDER
     Route: 030
     Dates: start: 20120625
  8. LOXAPINE. [Suspect]
     Active Substance: LOXAPINE
     Indication: BIPOLAR DISORDER
     Dosage: 275+100 MG ; AS REQUIRED
     Route: 048
     Dates: start: 20120614
  9. MORPHINE [Suspect]
     Active Substance: MORPHINE
     Indication: ABDOMINAL PAIN
     Route: 042
     Dates: start: 20120625

REACTIONS (12)
  - Multiple organ dysfunction syndrome [Fatal]
  - Cardiac arrest [Fatal]
  - Gastric haemorrhage [Fatal]
  - Intestinal ischaemia [Fatal]
  - Candida infection [Fatal]
  - Staphylococcal bacteraemia [Fatal]
  - Pneumonia pseudomonal [Fatal]
  - Large intestine perforation [Fatal]
  - Septic shock [Fatal]
  - Subileus [Fatal]
  - Metabolic acidosis [Fatal]
  - Necrotising colitis [Fatal]

NARRATIVE: CASE EVENT DATE: 20120625
